FAERS Safety Report 8013344-1 (Version None)
Quarter: 2011Q4

REPORT INFORMATION
  Report Type: 
  Country: None (occurrence: None)
  Receive Date: 20111229
  Receipt Date: 20111222
  Transmission Date: 20120403
  Serious: Yes (Other)
  Sender: FDA-Public Use
  Company Number: US-GILEAD-2011-0047642

PATIENT
  Sex: Female

DRUGS (4)
  1. LISINOPRIL [Concomitant]
  2. LETAIRIS [Suspect]
     Indication: PULMONARY HYPERTENSION
     Dosage: 5 MG, UNK
     Route: 048
     Dates: start: 20110825
  3. LASIX [Concomitant]
  4. LETAIRIS [Suspect]
     Indication: SCLERODERMA

REACTIONS (1)
  - BLOOD PRESSURE DECREASED [None]
